FAERS Safety Report 20545804 (Version 12)
Quarter: 2024Q3

REPORT INFORMATION
  Report Type: Spontaneous
  Country: US (occurrence: US)
  Receive Date: 20220303
  Receipt Date: 20240816
  Transmission Date: 20241016
  Serious: Yes (Hospitalization, Disabling, Other)
  Sender: ORGANON
  Company Number: US-ORGANON-O2203USA000178

PATIENT
  Sex: Female
  Weight: 111.11 kg

DRUGS (1)
  1. SINGULAIR [Suspect]
     Active Substance: MONTELUKAST SODIUM
     Indication: Asthma
     Dosage: 1 TABLET DAILY IN THE EVENING
     Route: 048
     Dates: start: 1999, end: 2014

REACTIONS (34)
  - Migraine [Unknown]
  - Neuropsychological symptoms [Not Recovered/Not Resolved]
  - Major depression [Recovered/Resolved]
  - Suicide attempt [Unknown]
  - Generalised anxiety disorder [Not Recovered/Not Resolved]
  - Suicidal ideation [Recovered/Resolved]
  - Schizophrenia [Unknown]
  - Bipolar disorder [Not Recovered/Not Resolved]
  - Migraine [Recovered/Resolved]
  - Affective disorder [Unknown]
  - Ligament sprain [Unknown]
  - Ear congestion [Unknown]
  - Hypopnoea [Unknown]
  - Asthma [Unknown]
  - Rhinalgia [Unknown]
  - Wheezing [Unknown]
  - Sleep disorder [Not Recovered/Not Resolved]
  - Nightmare [Not Recovered/Not Resolved]
  - Nasal congestion [Unknown]
  - Insomnia [Unknown]
  - Headache [Unknown]
  - Restlessness [Unknown]
  - Post-traumatic stress disorder [Not Recovered/Not Resolved]
  - Pain in extremity [Unknown]
  - Chest pain [Unknown]
  - Microcytic anaemia [Unknown]
  - Anxiety [Recovering/Resolving]
  - Pain in extremity [Recovering/Resolving]
  - Peripheral swelling [Recovering/Resolving]
  - Depression [Not Recovered/Not Resolved]
  - Musculoskeletal pain [Unknown]
  - Condition aggravated [Unknown]
  - Stress [Unknown]
  - Upper respiratory tract infection [Unknown]

NARRATIVE: CASE EVENT DATE: 20000101
